FAERS Safety Report 5394402-7 (Version None)
Quarter: 2007Q3

REPORT INFORMATION
  Report Type: 
  Country: None (occurrence: None)
  Receive Date: 20070723
  Receipt Date: 20070716
  Transmission Date: 20080115
  Serious: Yes (Other)
  Sender: FDA-Public Use
  Company Number: CA-ASTRAZENECA-2007UW16528

PATIENT
  Sex: Female

DRUGS (1)
  1. LOSEC MUPS [Suspect]
     Indication: OESOPHAGITIS ULCERATIVE
     Route: 048
     Dates: start: 20070701

REACTIONS (9)
  - ABDOMINAL PAIN [None]
  - BLOOD PRESSURE FLUCTUATION [None]
  - CHEST DISCOMFORT [None]
  - DEPRESSED LEVEL OF CONSCIOUSNESS [None]
  - DISCOMFORT [None]
  - HAEMATEMESIS [None]
  - STOMATITIS [None]
  - SYNCOPE [None]
  - VERTIGO [None]
